FAERS Safety Report 9153839 (Version 1)
Quarter: 2013Q1

REPORT INFORMATION
  Report Type: Spontaneous
  Country: JP (occurrence: JP)
  Receive Date: 20130311
  Receipt Date: 20130311
  Transmission Date: 20140127
  Serious: Yes (Hospitalization)
  Sender: FDA-Public Use
  Company Number: JP-009507513-1303JPN002969

PATIENT
  Age: 71 Year
  Sex: Male

DRUGS (1)
  1. JANUVIA TABLETS 100MG [Suspect]
     Indication: DIABETES MELLITUS
     Dosage: 100 MG, QD
     Route: 048
     Dates: start: 20121217, end: 201302

REACTIONS (1)
  - Rhabdomyolysis [Not Recovered/Not Resolved]
